FAERS Safety Report 4972501-9 (Version None)
Quarter: 2006Q2

REPORT INFORMATION
  Report Type: 
  Country: None (occurrence: None)
  Receive Date: 20060413
  Receipt Date: 20060329
  Transmission Date: 20061013
  Serious: Yes (Other)
  Sender: FDA-Public Use
  Company Number: JP-MERCK-0604USA00085

PATIENT
  Age: 4 Year
  Sex: Male

DRUGS (8)
  1. OCTREOTIDE ACETATE [Concomitant]
     Indication: ACUTE LYMPHOCYTIC LEUKAEMIA
     Route: 051
  2. [THERAPY UNSPECIFIED] [Concomitant]
     Indication: ACUTE LYMPHOCYTIC LEUKAEMIA
     Route: 051
  3. DECADRON [Suspect]
     Indication: ACUTE LYMPHOCYTIC LEUKAEMIA
     Route: 048
  4. DECADRON [Suspect]
     Route: 048
  5. ELSPAR [Concomitant]
     Indication: ACUTE LYMPHOCYTIC LEUKAEMIA
     Route: 042
  6. NAFAMOSTAT MESYLATE [Concomitant]
     Indication: PANCREATITIS
     Route: 042
  7. ULINASTATIN [Concomitant]
     Indication: PANCREATITIS
     Route: 042
  8. CITICOLINE [Concomitant]
     Indication: PANCREATITIS
     Route: 042

REACTIONS (3)
  - ABDOMINAL PAIN [None]
  - ALANINE AMINOTRANSFERASE INCREASED [None]
  - ASPARTATE AMINOTRANSFERASE INCREASED [None]
